FAERS Safety Report 24702239 (Version 1)
Quarter: 2024Q4

REPORT INFORMATION
  Report Type: Spontaneous
  Country: NI (occurrence: NI)
  Receive Date: 20241205
  Receipt Date: 20241205
  Transmission Date: 20250115
  Serious: Yes (Death, Hospitalization, Other)
  Sender: NOVARTIS
  Company Number: NI-002147023-NVSC2024NI091990

PATIENT
  Sex: Female

DRUGS (1)
  1. GLIVEC [Suspect]
     Active Substance: IMATINIB MESYLATE
     Indication: Gastrointestinal stromal tumour
     Dosage: 800 MG (2X400MG)
     Route: 065

REACTIONS (3)
  - Metastases to liver [Fatal]
  - Metastases to lung [Fatal]
  - Hepatic mass [Unknown]
